FAERS Safety Report 21250151 (Version 1)
Quarter: 2022Q3

REPORT INFORMATION
  Report Type: Spontaneous
  Country: GB (occurrence: None)
  Receive Date: 20220824
  Receipt Date: 20220824
  Transmission Date: 20221027
  Serious: Yes (Other)
  Sender: FDA-Public Use
  Company Number: GB-Eisai Medical Research-EC-2022-121670

PATIENT
  Age: 75 Year
  Sex: Female
  Weight: 57 kg

DRUGS (5)
  1. LENVIMA [Suspect]
     Active Substance: LENVATINIB
     Indication: Endometrial cancer
     Route: 048
     Dates: start: 20220721, end: 20220809
  2. LENVIMA [Suspect]
     Active Substance: LENVATINIB
     Route: 048
     Dates: start: 202208
  3. LOSARTAN [Concomitant]
     Active Substance: LOSARTAN
     Indication: Hypertension
     Route: 048
     Dates: end: 20220808
  4. LOSARTAN [Concomitant]
     Active Substance: LOSARTAN
     Route: 048
     Dates: start: 20220809, end: 20220813
  5. LOSARTAN [Concomitant]
     Active Substance: LOSARTAN
     Route: 048
     Dates: start: 202208

REACTIONS (1)
  - Hypertension [Recovered/Resolved]

NARRATIVE: CASE EVENT DATE: 20220809
